FAERS Safety Report 17132925 (Version 1)
Quarter: 2019Q4

REPORT INFORMATION
  Report Type: Spontaneous
  Country: US (occurrence: US)
  Receive Date: 20191209
  Receipt Date: 20191209
  Transmission Date: 20200122
  Serious: Yes (Death)
  Sender: FDA-Public Use
  Company Number: None

PATIENT
  Age: 85 Year
  Sex: Female

DRUGS (1)
  1. CTFO (CHANGING THE FUTURE OUTCOME) 10XPURE CBD HEMP OIL [Suspect]
     Active Substance: CANNABIDIOL\CANNABIS SATIVA SEED OIL
     Route: 048

REACTIONS (4)
  - Organ failure [None]
  - Suspected product contamination [None]
  - Vomiting [None]
  - Product quality issue [None]

NARRATIVE: CASE EVENT DATE: 20190301
